FAERS Safety Report 5299615-0 (Version None)
Quarter: 2007Q2

REPORT INFORMATION
  Report Type: 
  Country: None (occurrence: None)
  Receive Date: 20070417
  Receipt Date: 20070405
  Transmission Date: 20071010
  Serious: Yes (Hospitalization)
  Sender: FDA-Public Use
  Company Number: HQWYE248130MAR07

PATIENT
  Sex: Male
  Weight: 77.18 kg

DRUGS (3)
  1. EFFEXOR XR [Suspect]
     Indication: DEPRESSION
     Route: 048
  2. CLARITIN [Concomitant]
     Dosage: UNKNOWN DOSE AS NEEDED
  3. CENTRUM [Concomitant]
     Dosage: UNKNOWN

REACTIONS (3)
  - DIZZINESS [None]
  - FEELING ABNORMAL [None]
  - PARAESTHESIA [None]
